FAERS Safety Report 20611887 (Version 2)
Quarter: 2025Q4

REPORT INFORMATION
  Report Type: Spontaneous
  Country: US (occurrence: US)
  Receive Date: 20220318
  Receipt Date: 20251105
  Transmission Date: 20260118
  Serious: Yes (Other)
  Sender: MERCK SHARP & DOHME LLC
  Company Number: US-009507513-2203USA005475

PATIENT
  Age: 72 Year
  Sex: Female

DRUGS (3)
  1. KEYTRUDA [Suspect]
     Active Substance: PEMBROLIZUMAB
     Dosage: DOSE DESCRIPTION : UNK
  2. LENVATINIB MESYLATE [Suspect]
     Active Substance: LENVATINIB MESYLATE
     Indication: Endometrial cancer
     Dosage: DOSE DESCRIPTION : 18 MG DAILY (ALSO REPORTED AS OFF LABEL STARTING DOSE/MANUFACTURER RECOMMENDAT...
     Route: 048
     Dates: start: 20220114, end: 20220211
  3. LENVATINIB MESYLATE [Suspect]
     Active Substance: LENVATINIB MESYLATE
     Indication: Endometrial cancer
     Route: 048
     Dates: start: 20250206

REACTIONS (4)
  - Pancreatic failure [Recovering/Resolving]
  - Arthralgia [Recovering/Resolving]
  - Dysphonia [Recovered/Resolved]
  - Troponin increased [Recovering/Resolving]

NARRATIVE: CASE EVENT DATE: 20220101
